FAERS Safety Report 14282918 (Version 1)
Quarter: 2017Q4

REPORT INFORMATION
  Report Type: Spontaneous
  Country: US (occurrence: US)
  Receive Date: 20171213
  Receipt Date: 20171213
  Transmission Date: 20180321
  Serious: No
  Sender: FDA-Public Use
  Company Number: US-PERNIX THERAPEUTICS-2017PT000079

PATIENT

DRUGS (2)
  1. HYDROCODONE BITARTRATE (MFR UNKNOWN) [Suspect]
     Active Substance: HYDROCODONE BITARTRATE
     Indication: BACK PAIN
     Dosage: ^10S^ TABLET, THREE TIMES DAILY
     Route: 048
  2. HYDROCODONE BITARTRATE (MFR UNKNOWN) [Suspect]
     Active Substance: HYDROCODONE BITARTRATE
     Indication: NEUROPATHY PERIPHERAL

REACTIONS (1)
  - Drug ineffective [Not Recovered/Not Resolved]
